FAERS Safety Report 13140524 (Version 3)
Quarter: 2017Q1

REPORT INFORMATION
  Report Type: Spontaneous
  Country: FR (occurrence: FR)
  Receive Date: 20170123
  Receipt Date: 20170217
  Transmission Date: 20170428
  Serious: Yes (Death, Other)
  Sender: FDA-Public Use
  Company Number: FR-TEVA-730227ROM

PATIENT
  Age: 65 Year
  Sex: Male
  Weight: 61 kg

DRUGS (3)
  1. CISPLATINE ACCORD [Suspect]
     Active Substance: CISPLATIN
     Indication: TESTIS CANCER
     Dosage: 3 COURSES OF 5 DAYS BEP PROTOCOL (BLEOMYCINE, ETOPOSIDE, PLATINE)
     Dates: start: 20160829, end: 20161028
  2. ETOPOSIDE. [Concomitant]
     Active Substance: ETOPOSIDE
     Indication: TESTIS CANCER
     Dosage: BEP PROTOCOL (BLEOMYCINE, ETOPOSIDE, PLATINE)
     Route: 042
     Dates: start: 20160829, end: 20161028
  3. BLEOMYCIN [Concomitant]
     Active Substance: BLEOMYCIN SULFATE
     Indication: TESTIS CANCER
     Dosage: BEP PROTOCOL (BLEOMYCINE, ETOPOSIDE, PLATINE)
     Route: 042
     Dates: start: 20160829, end: 20161031

REACTIONS (7)
  - Eating disorder [Unknown]
  - Vertigo [Unknown]
  - Acute kidney injury [Recovered/Resolved with Sequelae]
  - Tinnitus [Unknown]
  - Pneumonia aspiration [Fatal]
  - Febrile bone marrow aplasia [Unknown]
  - Tremor [Unknown]

NARRATIVE: CASE EVENT DATE: 20160829
